FAERS Safety Report 16122062 (Version 45)
Quarter: 2025Q1

REPORT INFORMATION
  Report Type: Spontaneous
  Country: US (occurrence: US)
  Receive Date: 20190327
  Receipt Date: 20250313
  Transmission Date: 20250409
  Serious: Yes (Hospitalization, Other)
  Sender: PFIZER
  Company Number: US-PFIZER INC-2019127333

PATIENT
  Age: 67 Year
  Sex: Female
  Weight: 72.57 kg

DRUGS (28)
  1. XELJANZ [Suspect]
     Active Substance: TOFACITINIB CITRATE
     Indication: Colitis ulcerative
     Dosage: 10 MG, 2X/DAY
     Route: 048
     Dates: start: 20190315, end: 20190315
  2. XELJANZ [Suspect]
     Active Substance: TOFACITINIB CITRATE
     Indication: Colitis
     Dosage: 5 MG, 2X/DAY
     Route: 048
     Dates: start: 20190315
  3. XELJANZ [Suspect]
     Active Substance: TOFACITINIB CITRATE
     Dosage: 5 MG, 2X/DAY
     Route: 048
     Dates: start: 20190319
  4. XELJANZ [Suspect]
     Active Substance: TOFACITINIB CITRATE
     Dosage: 5 MG, 1X/DAY
     Route: 048
  5. XELJANZ [Suspect]
     Active Substance: TOFACITINIB CITRATE
     Dosage: 5 MG, 2X/DAY
     Route: 048
     Dates: end: 202201
  6. XELJANZ [Suspect]
     Active Substance: TOFACITINIB CITRATE
     Dosage: 5 MG, 2X/DAY
     Route: 048
     Dates: start: 20220621
  7. XELJANZ [Suspect]
     Active Substance: TOFACITINIB CITRATE
     Dosage: 5 MG, 1X/DAY
     Route: 048
     Dates: start: 202209
  8. XELJANZ [Suspect]
     Active Substance: TOFACITINIB CITRATE
     Route: 048
  9. ACYCLOVIR [Concomitant]
     Active Substance: ACYCLOVIR
  10. ALBUTEROL SULFATE [Concomitant]
     Active Substance: ALBUTEROL SULFATE
     Indication: Asthma
     Route: 055
  11. ALLOPURINOL [Concomitant]
     Active Substance: ALLOPURINOL
  12. ALPHA LIPOIC [Concomitant]
  13. BACTRIM [Concomitant]
     Active Substance: SULFAMETHOXAZOLE\TRIMETHOPRIM
  14. BERBERINE [Concomitant]
     Active Substance: BERBERINE
     Dates: start: 20200301
  15. CALQUENCE [Concomitant]
     Active Substance: ACALABRUTINIB
  16. COQ [Concomitant]
  17. UNSPECIFIED INGREDIENT [Concomitant]
     Active Substance: UNSPECIFIED INGREDIENT
  18. FAMOTIDINE [Concomitant]
     Active Substance: FAMOTIDINE
  19. FISH OIL [Concomitant]
     Active Substance: FISH OIL
  20. GINGER [Concomitant]
     Active Substance: GINGER
  21. LORAZEPAM [Concomitant]
     Active Substance: LORAZEPAM
     Indication: Anxiety
     Route: 048
  22. DIETARY SUPPLEMENT\HERBALS\MILK THISTLE [Concomitant]
     Active Substance: MILK THISTLE
  23. NIACIN [Concomitant]
     Active Substance: NIACIN
     Dates: start: 20200301
  24. MINERALS\VITAMINS [Concomitant]
     Active Substance: MINERALS\VITAMINS
  25. PHENOLPHTHALEIN [Concomitant]
     Active Substance: PHENOLPHTHALEIN
  26. THYROID [Concomitant]
     Active Substance: LEVOTHYROXINE\LIOTHYRONINE
     Indication: Hypothyroidism
     Route: 048
  27. HERBALS\TURMERIC [Concomitant]
     Active Substance: HERBALS\TURMERIC
  28. VITAMIN K 2 [Concomitant]

REACTIONS (25)
  - Colitis ulcerative [Recovered/Resolved]
  - Cataract [Unknown]
  - Colitis [Unknown]
  - Chronic lymphocytic leukaemia [Not Recovered/Not Resolved]
  - Disease progression [Not Recovered/Not Resolved]
  - Colonoscopy [Unknown]
  - Drug ineffective [Unknown]
  - Intentional product misuse [Unknown]
  - Condition aggravated [Unknown]
  - Lipids increased [Unknown]
  - Alopecia [Not Recovered/Not Resolved]
  - Condition aggravated [Not Recovered/Not Resolved]
  - Cardiac disorder [Unknown]
  - Illness [Unknown]
  - Inflammation [Unknown]
  - Dysarthria [Unknown]
  - Serum ferritin increased [Unknown]
  - Blood glucose increased [Unknown]
  - Disease recurrence [Unknown]
  - Diarrhoea [Recovered/Resolved]
  - Back disorder [Unknown]
  - Dyspnoea exertional [Unknown]
  - Product dose confusion [Unknown]
  - Weight increased [Unknown]
  - Constipation [Recovering/Resolving]

NARRATIVE: CASE EVENT DATE: 20190318
